FAERS Safety Report 8267327-7 (Version None)
Quarter: 2012Q2

REPORT INFORMATION
  Report Type: 
  Country: None (occurrence: None)
  Receive Date: 20120405
  Receipt Date: 20120405
  Transmission Date: 20120825
  Serious: Yes (Other)
  Sender: FDA-Public Use
  Company Number: None

PATIENT
  Sex: Female

DRUGS (1)
  1. REMICADE [Suspect]
     Indication: COLITIS ULCERATIVE
     Dosage: 634 MG Q6W IV
     Route: 042
     Dates: start: 20110210, end: 20120402

REACTIONS (1)
  - SYSTEMIC LUPUS ERYTHEMATOSUS [None]
